FAERS Safety Report 4474133-8 (Version None)
Quarter: 2004Q4

REPORT INFORMATION
  Report Type: 
  Country: None (occurrence: None)
  Receive Date: 20041008
  Receipt Date: 20040920
  Transmission Date: 20050328
  Serious: Yes (Life-Threatening, Hospitalization)
  Sender: FDA-Public Use
  Company Number: FR_040604369

PATIENT
  Age: 47 Year
  Sex: Male
  Weight: 65 kg

DRUGS (2)
  1. GEMZAR [Suspect]
     Indication: NON-SMALL CELL LUNG CANCER
     Dosage: 1000 MG/M2/3 OTHER
     Route: 050
     Dates: start: 20040331, end: 20040401
  2. CARBOPLATIN [Concomitant]

REACTIONS (3)
  - ACUTE LEFT VENTRICULAR FAILURE [None]
  - CONGESTIVE CARDIOMYOPATHY [None]
  - MYOCARDIAL ISCHAEMIA [None]
